FAERS Safety Report 14646483 (Version 1)
Quarter: 2018Q1

REPORT INFORMATION
  Report Type: Spontaneous
  Country: JP (occurrence: JP)
  Receive Date: 20180316
  Receipt Date: 20180316
  Transmission Date: 20180509
  Serious: Yes (Other)
  Sender: FDA-Public Use
  Company Number: JP-FRESENIUS KABI-FK201803160

PATIENT
  Age: 2 Hour
  Sex: Male

DRUGS (4)
  1. MAGNESIUM SULFATE (MANUFACTURER UNKNOWN) [Suspect]
     Active Substance: MAGNESIUM SULFATE
     Route: 064
  2. MAGNESIUM SULFATE (MANUFACTURER UNKNOWN) [Suspect]
     Active Substance: MAGNESIUM SULFATE
     Indication: GESTATIONAL HYPERTENSION
     Route: 064
  3. MAGNESIUM SULFATE (MANUFACTURER UNKNOWN) [Suspect]
     Active Substance: MAGNESIUM SULFATE
     Indication: PRE-ECLAMPSIA
     Route: 064
  4. MAGNESIUM SULFATE (MANUFACTURER UNKNOWN) [Suspect]
     Active Substance: MAGNESIUM SULFATE
     Indication: POSTPONEMENT OF PRETERM DELIVERY
     Route: 064

REACTIONS (4)
  - Hyperkalaemia [Recovered/Resolved]
  - Maternal drugs affecting foetus [Recovered/Resolved]
  - Hypermagnesaemia [Recovered/Resolved]
  - Product use in unapproved indication [Recovered/Resolved]
